FAERS Safety Report 10077811 (Version 1)
Quarter: 2014Q2

REPORT INFORMATION
  Report Type: Report from Study
  Country: US (occurrence: US)
  Receive Date: 20140414
  Receipt Date: 20140414
  Transmission Date: 20141212
  Serious: Yes (Hospitalization)
  Sender: FDA-Public Use
  Company Number: PHEH2014US007287

PATIENT
  Age: 50 Year
  Sex: Female

DRUGS (2)
  1. TOBI [Suspect]
     Indication: PNEUMONIA PSEUDOMONAL
     Dosage: 1 DF, BID
     Route: 055
     Dates: start: 201302
  2. TOBI [Suspect]
     Indication: BRONCHIECTASIS

REACTIONS (1)
  - Pneumonia [Unknown]
